FAERS Safety Report 4779786-2 (Version None)
Quarter: 2005Q3

REPORT INFORMATION
  Report Type: 
  Country: None (occurrence: None)
  Receive Date: 20050927
  Receipt Date: 20050829
  Transmission Date: 20060218
  Serious: Yes (Hospitalization)
  Sender: FDA-Public Use
  Company Number: 200517619GDDC

PATIENT
  Age: 54 Year
  Sex: Male

DRUGS (7)
  1. DOCETAXEL [Suspect]
     Indication: PROSTATE CANCER
     Route: 042
     Dates: start: 20050629, end: 20050810
  2. PREDNISOLONE [Suspect]
     Indication: PROSTATE CANCER
     Dosage: DOSE: UNK
  3. NEORECORMON [Concomitant]
     Indication: ANAEMIA OF MALIGNANT DISEASE
     Route: 058
     Dates: start: 20050713
  4. DEXAMETHASONE [Concomitant]
  5. PREDNISON [Concomitant]
  6. NEXIUM [Concomitant]
  7. ZOLADEX [Concomitant]

REACTIONS (1)
  - ACUTE MYELOID LEUKAEMIA [None]
